FAERS Safety Report 8059062-5 (Version None)
Quarter: 2012Q1

REPORT INFORMATION
  Report Type: 
  Country: None (occurrence: None)
  Receive Date: 20120120
  Receipt Date: 20110701
  Transmission Date: 20120608
  Serious: No
  Sender: FDA-Public Use
  Company Number: US-BAUSCH-2011BL004410

PATIENT
  Age: 48 Year
  Sex: Female

DRUGS (3)
  1. ALAWAY [Suspect]
     Indication: EYE PRURITUS
     Route: 047
     Dates: start: 20110601, end: 20110601
  2. CLARITIN /USA/ [Concomitant]
     Indication: PERENNIAL ALLERGY
     Route: 048
  3. NASONEX [Concomitant]
     Indication: PERENNIAL ALLERGY
     Route: 045

REACTIONS (1)
  - INSTILLATION SITE PAIN [None]
